FAERS Safety Report 6744868-2 (Version None)
Quarter: 2010Q2

REPORT INFORMATION
  Report Type: 
  Country: None (occurrence: None)
  Receive Date: 20100527
  Receipt Date: 20100422
  Transmission Date: 20101027
  Serious: No
  Sender: FDA-Public Use
  Company Number: US-BRISTOL-MYERS SQUIBB COMPANY-15060924

PATIENT
  Age: 68 Year
  Sex: Male

DRUGS (2)
  1. ONGLYZA [Suspect]
     Indication: TYPE 2 DIABETES MELLITUS
     Route: 048
     Dates: start: 20100209
  2. METFORMIN HYDROCHLORIDE [Concomitant]

REACTIONS (2)
  - FATIGUE [None]
  - NAUSEA [None]
